FAERS Safety Report 12848331 (Version 2)
Quarter: 2016Q4

REPORT INFORMATION
  Report Type: Spontaneous
  Country: AU (occurrence: AU)
  Receive Date: 20161014
  Receipt Date: 20161018
  Transmission Date: 20170207
  Serious: Yes (Other)
  Sender: FDA-Public Use
  Company Number: AU-009507513-1610AUS001571

PATIENT
  Age: 64 Year
  Sex: Male
  Weight: 73 kg

DRUGS (1)
  1. JANUMET [Suspect]
     Active Substance: METFORMIN HYDROCHLORIDE\SITAGLIPTIN PHOSPHATE
     Indication: TYPE 2 DIABETES MELLITUS
     Dosage: 50/1000MG, BID
     Route: 048
     Dates: start: 20140305, end: 20160624

REACTIONS (5)
  - Vertigo [Recovered/Resolved]
  - Dizziness [Not Recovered/Not Resolved]
  - Coronary artery disease [Recovered/Resolved]
  - Oedema peripheral [Recovered/Resolved]
  - Nausea [Recovered/Resolved]

NARRATIVE: CASE EVENT DATE: 20160623
